FAERS Safety Report 6108975-X (Version None)
Quarter: 2009Q1

REPORT INFORMATION
  Report Type: 
  Country: None (occurrence: None)
  Receive Date: 20090306
  Receipt Date: 20090223
  Transmission Date: 20090719
  Serious: Yes (Other)
  Sender: FDA-Public Use
  Company Number: 2009-00475

PATIENT
  Age: 56 Year
  Sex: Female

DRUGS (4)
  1. VELCADE [Suspect]
     Indication: MULTIPLE MYELOMA
     Dosage: 2.6 MG; 2.6 MG;
     Dates: start: 20080411, end: 20080704
  2. VELCADE [Suspect]
     Indication: MULTIPLE MYELOMA
     Dosage: 2.6 MG; 2.6 MG;
     Dates: start: 20081219
  3. DEXAMETHASONE TAB [Suspect]
     Indication: MULTIPLE MYELOMA
     Dosage: 20 MG; 20 MG;
     Dates: start: 20080411, end: 20080705
  4. DEXAMETHASONE TAB [Suspect]
     Indication: MULTIPLE MYELOMA
     Dosage: 20 MG; 20 MG;
     Dates: start: 20081219, end: 20090205

REACTIONS (3)
  - ASTHENIA [None]
  - CATARACT [None]
  - GENERAL PHYSICAL HEALTH DETERIORATION [None]
